FAERS Safety Report 17170609 (Version 2)
Quarter: 2020Q1

REPORT INFORMATION
  Report Type: Other
  Country: PT (occurrence: PT)
  Receive Date: 20191218
  Receipt Date: 20200114
  Transmission Date: 20200409
  Serious: Yes (Hospitalization, Other)
  Sender: FDA-Public Use
  Company Number: PT-ASPEN-GLO2019PT013362

PATIENT
  Age: 37 Year
  Sex: Male

DRUGS (14)
  1. DOXORUBICIN [Suspect]
     Active Substance: DOXORUBICIN
     Indication: TESTIS CANCER
  2. DEXAMETHASONE. [Suspect]
     Active Substance: DEXAMETHASONE
     Indication: B-CELL LYMPHOMA
     Dosage: SECOND CHEMOTHERAPY CYCLE
     Route: 065
  3. CYTARABINE. [Suspect]
     Active Substance: CYTARABINE
     Indication: TESTIS CANCER
  4. RITUXIMAB. [Suspect]
     Active Substance: RITUXIMAB
     Indication: B-CELL LYMPHOMA
     Dosage: SECOND CHEMOTHERAPY CYCLE
     Route: 065
  5. RITUXIMAB. [Suspect]
     Active Substance: RITUXIMAB
     Indication: TESTIS CANCER
  6. METHOTREXATE. [Suspect]
     Active Substance: METHOTREXATE
     Indication: B-CELL LYMPHOMA
     Dosage: SECOND CHEMOTHERAPY CYCLE
     Route: 065
  7. CYCLOPHOSPHAMIDE. [Suspect]
     Active Substance: CYCLOPHOSPHAMIDE
     Indication: B-CELL LYMPHOMA
     Dosage: SECOND CHEMOTHERAPY CYCLE
     Route: 065
  8. CYCLOPHOSPHAMIDE. [Suspect]
     Active Substance: CYCLOPHOSPHAMIDE
     Indication: TESTIS CANCER
  9. VINCRISTINE [Suspect]
     Active Substance: VINCRISTINE
     Indication: B-CELL LYMPHOMA
     Dosage: SECOND CHEMOTHERAPY CYCLE
     Route: 065
  10. DEXAMETHASONE. [Suspect]
     Active Substance: DEXAMETHASONE
     Indication: TESTIS CANCER
  11. VINCRISTINE [Suspect]
     Active Substance: VINCRISTINE
     Indication: TESTIS CANCER
  12. CYTARABINE. [Suspect]
     Active Substance: CYTARABINE
     Indication: B-CELL LYMPHOMA
     Dosage: SECOND CHEMOTHERAPY CYCLE
     Route: 065
  13. DOXORUBICIN [Suspect]
     Active Substance: DOXORUBICIN
     Indication: B-CELL LYMPHOMA
     Dosage: SECOND CHEMOTHERAPY CYCLE
     Route: 065
  14. METHOTREXATE. [Suspect]
     Active Substance: METHOTREXATE
     Indication: TESTIS CANCER

REACTIONS (5)
  - Hypertension [Unknown]
  - Pancytopenia [Unknown]
  - Posterior reversible encephalopathy syndrome [Recovered/Resolved with Sequelae]
  - Depressed level of consciousness [Unknown]
  - Febrile neutropenia [Unknown]
